FAERS Safety Report 10993937 (Version 10)
Quarter: 2018Q3

REPORT INFORMATION
  Report Type: Report from Study
  Country: US (occurrence: US)
  Receive Date: 20150407
  Receipt Date: 20180713
  Transmission Date: 20181010
  Serious: Yes (Hospitalization, Other)
  Sender: FDA-Public Use
  Company Number: US-SANOFI-AVENTIS-2013SA019326

PATIENT
  Age: 50 Year
  Sex: Female

DRUGS (4)
  1. TERIFLUNOMIDE [Suspect]
     Active Substance: TERIFLUNOMIDE
     Dosage: 7 MG,QD
     Route: 048
     Dates: start: 2015, end: 201607
  2. TAMOXIFEN [Concomitant]
     Active Substance: TAMOXIFEN
     Indication: NEOPLASM MALIGNANT
     Dosage: UNK
  3. TERIFLUNOMIDE [Suspect]
     Active Substance: TERIFLUNOMIDE
     Dosage: 14 MG, QD
     Dates: end: 20160723
  4. TERIFLUNOMIDE [Suspect]
     Active Substance: TERIFLUNOMIDE
     Indication: MULTIPLE SCLEROSIS
     Dosage: 7 MG,QD
     Route: 048
     Dates: start: 20130125, end: 201504

REACTIONS (13)
  - Stress [Unknown]
  - Urinary tract infection [Unknown]
  - Multiple sclerosis relapse [Not Recovered/Not Resolved]
  - Unevaluable event [Not Recovered/Not Resolved]
  - Concussion [Unknown]
  - Congenital hearing disorder [Not Recovered/Not Resolved]
  - Drug ineffective [Unknown]
  - Influenza like illness [Unknown]
  - Fall [Unknown]
  - Head injury [Unknown]
  - Post concussion syndrome [Not Recovered/Not Resolved]
  - Fall [Unknown]
  - Craniocerebral injury [Unknown]

NARRATIVE: CASE EVENT DATE: 2015
